FAERS Safety Report 24264587 (Version 1)
Quarter: 2024Q3

REPORT INFORMATION
  Report Type: Spontaneous
  Country: JP (occurrence: JP)
  Receive Date: 20240829
  Receipt Date: 20240829
  Transmission Date: 20241017
  Serious: Yes (Other)
  Sender: ASTELLAS
  Company Number: JP-ASTELLAS-2024JP002112

PATIENT
  Age: 9 Decade
  Sex: Male

DRUGS (5)
  1. XOSPATA [Suspect]
     Active Substance: GILTERITINIB
     Indication: Acute myeloid leukaemia recurrent
     Route: 065
     Dates: start: 20240131, end: 20240215
  2. AZACITIDINE [Concomitant]
     Active Substance: AZACITIDINE
     Indication: Acute myeloid leukaemia
     Route: 065
     Dates: end: 202401
  3. AZACITIDINE [Concomitant]
     Active Substance: AZACITIDINE
     Route: 065
  4. VENETOCLAX [Concomitant]
     Active Substance: VENETOCLAX
     Indication: Acute myeloid leukaemia
     Route: 065
     Dates: end: 202401
  5. VENETOCLAX [Concomitant]
     Active Substance: VENETOCLAX
     Route: 065

REACTIONS (2)
  - Central nervous system leukaemia [Recovering/Resolving]
  - Full blood count decreased [Recovering/Resolving]
